FAERS Safety Report 18395004 (Version 2)
Quarter: 2020Q4

REPORT INFORMATION
  Report Type: Spontaneous
  Country: JP (occurrence: JP)
  Receive Date: 20201016
  Receipt Date: 20201207
  Transmission Date: 20210114
  Serious: No
  Sender: FDA-Public Use
  Company Number: JP-OTSUKA-2020_024760

PATIENT

DRUGS (1)
  1. ABILIFY MAINTENA [Suspect]
     Active Substance: ARIPIPRAZOLE
     Indication: PRODUCT USED FOR UNKNOWN INDICATION
     Dosage: UNK
     Route: 065

REACTIONS (1)
  - Syringe issue [Unknown]

NARRATIVE: CASE EVENT DATE: 20201001
